FAERS Safety Report 17291633 (Version 1)
Quarter: 2020Q1

REPORT INFORMATION
  Report Type: Spontaneous
  Country: ZA (occurrence: ZA)
  Receive Date: 20200121
  Receipt Date: 20200121
  Transmission Date: 20200409
  Serious: Yes (Other)
  Sender: FDA-Public Use
  Company Number: ZA-BAYER-2020-004042

PATIENT
  Sex: Female

DRUGS (2)
  1. MIRENA [Suspect]
     Active Substance: LEVONORGESTREL
     Dosage: 20 MCG/24HR, CONT
     Route: 015
     Dates: start: 201911
  2. MIRENA [Suspect]
     Active Substance: LEVONORGESTREL

REACTIONS (5)
  - Abdominal distension [None]
  - Genital haemorrhage [Recovering/Resolving]
  - Weight increased [None]
  - Skin disorder [Not Recovered/Not Resolved]
  - Patient dissatisfaction with device [None]

NARRATIVE: CASE EVENT DATE: 201911
